FAERS Safety Report 8404663-5 (Version None)
Quarter: 2012Q2

REPORT INFORMATION
  Report Type: 
  Country: None (occurrence: None)
  Receive Date: 20120601
  Receipt Date: 20111206
  Transmission Date: 20120825
  Serious: No
  Sender: FDA-Public Use
  Company Number: US-NOVEN-11US003747

PATIENT
  Age: 14 Year
  Sex: Female
  Weight: 54.422 kg

DRUGS (2)
  1. DAYTRANA [Suspect]
     Indication: ATTENTION DEFICIT/HYPERACTIVITY DISORDER
     Dosage: 30 MG, QD
     Dates: start: 20111206
  2. DAYTRANA [Suspect]
     Dosage: UNK

REACTIONS (2)
  - APPLICATION SITE PRURITUS [None]
  - APPLICATION SITE URTICARIA [None]
